FAERS Safety Report 7712493-2 (Version None)
Quarter: 2011Q3

REPORT INFORMATION
  Report Type: 
  Country: None (occurrence: None)
  Receive Date: 20110826
  Receipt Date: 20110826
  Transmission Date: 20111222
  Serious: Yes (Other)
  Sender: FDA-Public Use
  Company Number: None

PATIENT
  Age: 91 Year
  Sex: Female
  Weight: 90.718 kg

DRUGS (2)
  1. VIOXX [Concomitant]
     Indication: ARTHRITIS
     Dosage: 1TABLET
  2. DARVOCET [Suspect]
     Indication: HYPERTENSION
     Dosage: 1TABLET
     Dates: start: 19850101, end: 20060727

REACTIONS (2)
  - PRODUCT QUALITY ISSUE [None]
  - UNEVALUABLE EVENT [None]
